FAERS Safety Report 8869723 (Version 1)
Quarter: 2012Q4

REPORT INFORMATION
  Report Type: Spontaneous
  Country: US (occurrence: None)
  Receive Date: 20121024
  Receipt Date: 20121024
  Transmission Date: 20130627
  Serious: Yes (Hospitalization, Other)
  Sender: FDA-Public Use
  Company Number: 2012AP003430

PATIENT
  Age: 6 Year
  Sex: Male
  Weight: 30 kg

DRUGS (2)
  1. OLANZAPINE [Suspect]
  2. DEXMEDITOMIDINE [Concomitant]

REACTIONS (7)
  - Delirium [None]
  - Hallucination, visual [None]
  - Sinus tachycardia [None]
  - Agitation [None]
  - Respiratory rate increased [None]
  - Gastrointestinal sounds abnormal [None]
  - Miosis [None]
